FAERS Safety Report 13185882 (Version 2)
Quarter: 2017Q1

REPORT INFORMATION
  Report Type: Other
  Country: IE (occurrence: IE)
  Receive Date: 20170203
  Receipt Date: 20170227
  Transmission Date: 20170428
  Serious: Yes (Other)
  Sender: FDA-Public Use
  Company Number: IE-LABORATOIRE HRA PHARMA-1062735

PATIENT
  Age: 23 Year
  Sex: Female
  Weight: 110 kg

DRUGS (1)
  1. ELLA [Suspect]
     Active Substance: ULIPRISTAL ACETATE
     Route: 048
     Dates: start: 20160810, end: 20160810

REACTIONS (5)
  - Abortion spontaneous [None]
  - Pelvic infection [None]
  - Unintended pregnancy [None]
  - Vaginal haemorrhage [None]
  - Drug ineffective [None]
